FAERS Safety Report 8671929 (Version 2)
Quarter: 2013Q4

REPORT INFORMATION
  Report Type: Spontaneous
  Country: US (occurrence: US)
  Receive Date: 20120718
  Receipt Date: 20131101
  Transmission Date: 20140711
  Serious: No
  Sender: FDA-Public Use
  Company Number: US-009507513-1204USA04207

PATIENT
  Sex: Female
  Weight: 79.38 kg

DRUGS (6)
  1. ZOCOR [Suspect]
     Indication: LOW DENSITY LIPOPROTEIN INCREASED
     Route: 048
  2. LIPITOR [Suspect]
     Indication: LOW DENSITY LIPOPROTEIN INCREASED
     Dates: start: 2010, end: 2010
  3. TEGRETOL [Concomitant]
     Indication: BIPOLAR DISORDER
     Dosage: 1200 MG, QD
     Route: 048
     Dates: start: 1994
  4. ZOLOF [Concomitant]
     Indication: BIPOLAR DISORDER
     Dosage: 400 MG, QD
     Route: 048
     Dates: start: 1994
  5. CRESTOR [Suspect]
     Indication: LOW DENSITY LIPOPROTEIN INCREASED
  6. TYLENOL [Concomitant]
     Indication: OSTEOARTHRITIS
     Dosage: UNK UNK, PRN

REACTIONS (2)
  - Muscular weakness [Recovered/Resolved]
  - Muscular weakness [Unknown]
